FAERS Safety Report 9399137 (Version 2)
Quarter: 2013Q4

REPORT INFORMATION
  Report Type: Spontaneous
  Country: US (occurrence: US)
  Receive Date: 20130715
  Receipt Date: 20131205
  Transmission Date: 20140711
  Serious: Yes (Hospitalization)
  Sender: FDA-Public Use
  Company Number: US-ROCHE-1247151

PATIENT
  Age: 53 Year
  Sex: Female

DRUGS (7)
  1. XOLAIR [Suspect]
     Indication: ASTHMA
     Route: 058
     Dates: start: 20130509
  2. SINGULAIR [Concomitant]
     Route: 048
  3. PRISTIQ [Concomitant]
     Route: 048
  4. TRAZODONE [Concomitant]
     Route: 048
  5. BENICAR [Concomitant]
     Route: 048
  6. PROAIR (UNITED STATES) [Concomitant]
     Route: 065
  7. DEPLIN [Concomitant]

REACTIONS (3)
  - Headache [Not Recovered/Not Resolved]
  - Respiratory disorder [Recovered/Resolved]
  - Pneumonia [Unknown]
